FAERS Safety Report 4557161-3 (Version None)
Quarter: 2005Q1

REPORT INFORMATION
  Report Type: 
  Country: None (occurrence: None)
  Receive Date: 20050114
  Receipt Date: 20050110
  Transmission Date: 20050727
  Serious: Yes (Death)
  Sender: FDA-Public Use
  Company Number: KII-2002-0003143

PATIENT
  Sex: Male

DRUGS (2)
  1. OXYCONTIN [Suspect]
     Indication: CANCER PAIN
     Dosage: Q2H
  2. DURAGESIC [Suspect]
     Indication: CANCER PAIN

REACTIONS (4)
  - CONDITION AGGRAVATED [None]
  - MEDICATION ERROR [None]
  - NEOPLASM MALIGNANT [None]
  - PANCREATIC CARCINOMA [None]
